FAERS Safety Report 25357973 (Version 1)
Quarter: 2025Q2

REPORT INFORMATION
  Report Type: Report from Study
  Country: BR (occurrence: BR)
  Receive Date: 20250526
  Receipt Date: 20250526
  Transmission Date: 20250717
  Serious: Yes (Death)
  Sender: CHEPLAPHARM
  Company Number: BR-CHEPLA-2025006445

PATIENT
  Age: 57 Year
  Sex: Male

DRUGS (1)
  1. GANCICLOVIR [Suspect]
     Active Substance: GANCICLOVIR
     Indication: Cytomegalovirus infection

REACTIONS (3)
  - Eosinophilic myocarditis [Fatal]
  - Skin lesion [Unknown]
  - Pruritus [Unknown]
